FAERS Safety Report 5258503-6 (Version None)
Quarter: 2007Q1

REPORT INFORMATION
  Report Type: 
  Country: None (occurrence: None)
  Receive Date: 20070308
  Receipt Date: 20070223
  Transmission Date: 20070707
  Serious: Yes (Other)
  Sender: FDA-Public Use
  Company Number: PHNU2006DE04190

PATIENT
  Age: 65 Year
  Sex: Male

DRUGS (5)
  1. ZOMETA [Suspect]
     Indication: METASTASES TO BONE
     Dosage: 4 MG, QMO
     Route: 042
     Dates: start: 20030501
  2. ARIMIDEX [Concomitant]
     Indication: BREAST CANCER METASTATIC
     Dosage: 1 MG, QD
     Route: 048
     Dates: start: 20030401
  3. RAMIPRIL [Concomitant]
     Indication: MYOCARDIAL ISCHAEMIA
     Dosage: 2.5 MG, QD
     Route: 048
  4. TRAMADOLOR [Concomitant]
     Indication: PAIN
     Route: 065
  5. FALITHROM ^HEXAL^ [Concomitant]
     Indication: AORTIC VALVE REPLACEMENT
     Dosage: UNK, PRN
     Route: 065
     Dates: start: 20031101

REACTIONS (4)
  - BIOPSY SITE UNSPECIFIED ABNORMAL [None]
  - JAW OPERATION [None]
  - OPEN WOUND [None]
  - OSTEONECROSIS [None]
